FAERS Safety Report 4727107-3 (Version None)
Quarter: 2005Q3

REPORT INFORMATION
  Report Type: 
  Country: None (occurrence: None)
  Receive Date: 20050726
  Receipt Date: 20050726
  Transmission Date: 20060218
  Serious: Yes (Hospitalization)
  Sender: FDA-Public Use
  Company Number: None

PATIENT
  Age: 51 Year
  Sex: Male
  Weight: 90.3 kg

DRUGS (7)
  1. TRAZODONE [Suspect]
  2. CLOTRIMAZOLE [Concomitant]
  3. ALOH/MGOH/SIMTN XTRA STRENGTH LIQ [Concomitant]
  4. FLUNISOLIDE [Concomitant]
  5. SODIUM LACTATE 5%/UREA 5% LOTION [Concomitant]
  6. LITHIUM CARBONATE [Concomitant]
  7. DIVALPROEX SODIUM [Concomitant]

REACTIONS (1)
  - RASH [None]
